FAERS Safety Report 9197246 (Version 1)
Quarter: 2013Q1

REPORT INFORMATION
  Report Type: Spontaneous
  Country: US (occurrence: US)
  Receive Date: 20130328
  Receipt Date: 20130328
  Transmission Date: 20140127
  Serious: Yes (Hospitalization)
  Sender: FDA-Public Use
  Company Number: US-BAYER-2013-036850

PATIENT
  Age: 39 Year
  Sex: Female

DRUGS (9)
  1. OCELLA [Suspect]
  2. YASMIN [Suspect]
  3. YAZ [Suspect]
  4. AMBIEN [Concomitant]
     Dosage: 10 MG, TAKE 1 TABLET HS
  5. TOPAMAX [Concomitant]
     Dosage: 25 MG, TAKE 1 TABLET BID
  6. ZYRTEC [Concomitant]
     Indication: SEASONAL ALLERGY
  7. AMPHETAMINE SALTS [Concomitant]
     Dosage: 10 MG, TAKE 1 TAB EVERY MORNING
  8. VITAMIN D [Concomitant]
     Dosage: 1.25 MG, 1 CAPSULE BY MOUTH WEEKLY
  9. LEVOPHED [Concomitant]
     Indication: HYPOTENSION

REACTIONS (4)
  - Pulmonary embolism [None]
  - Deep vein thrombosis [None]
  - Cholecystitis acute [None]
  - Pelvic venous thrombosis [None]
